FAERS Safety Report 13391262 (Version 1)
Quarter: 2017Q1

REPORT INFORMATION
  Report Type: Report from Study
  Country: CA (occurrence: CA)
  Receive Date: 20170331
  Receipt Date: 20170331
  Transmission Date: 20170429
  Serious: Yes (Other)
  Sender: FDA-Public Use
  Company Number: CA-BAYER-2017-029018

PATIENT
  Age: 79 Year
  Sex: Male

DRUGS (1)
  1. STIVARGA [Suspect]
     Active Substance: REGORAFENIB
     Dosage: 120 MG, QD
     Route: 048
     Dates: start: 20170215, end: 2017

REACTIONS (11)
  - General physical condition abnormal [Recovered/Resolved]
  - Decreased appetite [Not Recovered/Not Resolved]
  - Asthenia [Not Recovered/Not Resolved]
  - Decreased interest [Not Recovered/Not Resolved]
  - Off label use [Not Recovered/Not Resolved]
  - Adverse event [Recovered/Resolved]
  - Hypersomnia [None]
  - Fatigue [Not Recovered/Not Resolved]
  - Dyspnoea [None]
  - Feeling cold [Not Recovered/Not Resolved]
  - Therapy cessation [None]

NARRATIVE: CASE EVENT DATE: 20170302
